FAERS Safety Report 5338954-1 (Version None)
Quarter: 2007Q2

REPORT INFORMATION
  Report Type: 
  Country: None (occurrence: None)
  Receive Date: 20070530
  Receipt Date: 20070519
  Transmission Date: 20071010
  Serious: Yes (Hospitalization, Other)
  Sender: FDA-Public Use
  Company Number: US-PFIZER INC-2007000937

PATIENT
  Sex: Female
  Weight: 62.9 kg

DRUGS (3)
  1. CHANTIX [Suspect]
     Indication: CHOLECYSTITIS
     Route: 048
  2. FLONASE [Concomitant]
  3. COMBIVENT [Concomitant]

REACTIONS (11)
  - ABDOMINAL DISCOMFORT [None]
  - ABDOMINAL DISTENSION [None]
  - ABDOMINAL PAIN [None]
  - ASTHENIA [None]
  - CHEST PAIN [None]
  - CHOLECYSTITIS [None]
  - CONSTIPATION [None]
  - FLATULENCE [None]
  - INFLUENZA [None]
  - PYREXIA [None]
  - SURGERY [None]
